FAERS Safety Report 9817271 (Version 1)
Quarter: 2014Q1

REPORT INFORMATION
  Report Type: Spontaneous
  Country: US (occurrence: US)
  Receive Date: 20140115
  Receipt Date: 20140115
  Transmission Date: 20141002
  Serious: Yes (Other)
  Sender: FDA-Public Use
  Company Number: US-PFIZER INC-2014007631

PATIENT
  Age: 61 Year
  Sex: Male

DRUGS (1)
  1. VIAGRA [Suspect]
     Dosage: 50 MG, ALTERNATE DAY [STRENGTH: 100 MG; DIRECTIONS: 50 MG EVERY OTHER DAY]

REACTIONS (1)
  - Prostate cancer [Unknown]
